FAERS Safety Report 8322088-8 (Version None)
Quarter: 2012Q2

REPORT INFORMATION
  Report Type: 
  Country: None (occurrence: None)
  Receive Date: 20120430
  Receipt Date: 20120417
  Transmission Date: 20120825
  Serious: Yes (Other)
  Sender: FDA-Public Use
  Company Number: US-JNJFOC-20120113104

PATIENT
  Sex: Male

DRUGS (4)
  1. HYDROCORTISONE [Suspect]
     Indication: PROSTATE CANCER METASTATIC
     Route: 065
  2. HYDROCORTISONE [Suspect]
     Dosage: TAPERING DOSE AFTER 3 WEEKS
     Route: 065
  3. GONADOTROPIN-RELEASING HORMONE AGONIST [Concomitant]
     Indication: PRODUCT USED FOR UNKNOWN INDICATION
     Route: 065
  4. KETOCONAZOLE [Suspect]
     Indication: PROSTATE CANCER METASTATIC
     Route: 048

REACTIONS (2)
  - OFF LABEL USE [None]
  - HYPERGLYCAEMIA [None]
